FAERS Safety Report 4563021-4 (Version None)
Quarter: 2005Q1

REPORT INFORMATION
  Report Type: 
  Country: None (occurrence: None)
  Receive Date: 20050126
  Receipt Date: 20050118
  Transmission Date: 20050727
  Serious: Yes (Other)
  Sender: FDA-Public Use
  Company Number: 05-01-0078

PATIENT
  Age: 52 Year
  Sex: Male

DRUGS (1)
  1. CLOZAPINE [Suspect]
     Dosage: 250-525MG QD ORAL
     Route: 048
     Dates: start: 20010101, end: 20040401

REACTIONS (1)
  - WHITE BLOOD CELL COUNT DECREASED [None]
